FAERS Safety Report 15350025 (Version 4)
Quarter: 2019Q3

REPORT INFORMATION
  Report Type: Report from Study
  Country: JP (occurrence: JP)
  Receive Date: 20180904
  Receipt Date: 20190905
  Transmission Date: 20191004
  Serious: Yes (Death, Other)
  Sender: FDA-Public Use
  Company Number: JP-009507513-1807JPN003496J

PATIENT
  Age: 44 Year
  Sex: Male
  Weight: 80 kg

DRUGS (14)
  1. PROGRAF [Concomitant]
     Active Substance: TACROLIMUS\TACROLIMUS ANHYDROUS
     Indication: PROPHYLAXIS
     Dosage: 0.8~1.5 MILLIGRAM, QD
     Route: 065
  2. PREVYMIS [Suspect]
     Active Substance: LETERMOVIR
     Indication: ANTIVIRAL PROPHYLAXIS
     Dosage: 480 MILLIGRAM, QD
     Route: 048
     Dates: start: 20180724, end: 20180730
  3. CYCLOPHOSPHAMIDE. [Concomitant]
     Active Substance: CYCLOPHOSPHAMIDE
     Dosage: 4500 MILLIGRAM
     Route: 065
  4. BUSULFAN. [Concomitant]
     Active Substance: BUSULFAN
     Dosage: 245 MILLIGRAM
     Route: 065
  5. DOMPERIDONE [Concomitant]
     Active Substance: DOMPERIDONE
     Indication: PROPHYLAXIS
     Dosage: 10 MILLIGRAM, TID
     Route: 048
  6. CUBICIN [Concomitant]
     Active Substance: DAPTOMYCIN
     Dosage: 450 MILLIGRAM, QD
     Route: 051
  7. FLUCONAZOLE. [Concomitant]
     Active Substance: FLUCONAZOLE
     Indication: PROPHYLAXIS
     Dosage: 200 MILLIGRAM, QD
     Route: 048
  8. FUNGUARD [Concomitant]
     Active Substance: MICAFUNGIN SODIUM
     Dosage: 150 MILLIGRAM
     Route: 051
  9. FAMOTIDINE. [Concomitant]
     Active Substance: FAMOTIDINE
     Indication: PROPHYLAXIS
     Dosage: 20 MILLIGRAM, QD
     Route: 048
  10. URSODEOXYCHOLIC ACID [Concomitant]
     Active Substance: URSODIOL
     Indication: PROPHYLAXIS
     Dosage: 200 MILLIGRAM, TID
     Route: 048
  11. FEBURIC [Concomitant]
     Active Substance: FEBUXOSTAT
     Indication: PROPHYLAXIS
     Dosage: 10 MILLIGRAM, QD
     Route: 048
  12. ACICLOVIR [Concomitant]
     Active Substance: ACYCLOVIR
     Indication: PROPHYLAXIS
     Dosage: 200 MILLIGRAM, TID
     Route: 048
  13. BIO-THREE [Concomitant]
     Active Substance: HERBALS
     Indication: PROPHYLAXIS
     Dosage: 10 MILLIGRAM, TID
     Route: 048
  14. MEROPENEM. [Concomitant]
     Active Substance: MEROPENEM
     Dosage: 1 GRAM, TID
     Route: 051

REACTIONS (2)
  - Acute myeloid leukaemia recurrent [Fatal]
  - Agranulocytosis [Recovering/Resolving]

NARRATIVE: CASE EVENT DATE: 20180729
